FAERS Safety Report 8543976-3 (Version None)
Quarter: 2012Q3

REPORT INFORMATION
  Report Type: 
  Country: None (occurrence: None)
  Receive Date: 20120727
  Receipt Date: 20120717
  Transmission Date: 20120928
  Serious: Yes (Life-Threatening)
  Sender: FDA-Public Use
  Company Number: DE-FRI-1000037366

PATIENT
  Age: 72 Year
  Sex: Female
  Weight: 83 kg

DRUGS (1)
  1. ROFLUMILAST [Suspect]
     Indication: CHRONIC OBSTRUCTIVE PULMONARY DISEASE
     Dosage: 500 MCG
     Route: 048
     Dates: start: 20111115

REACTIONS (2)
  - ACUTE ABDOMEN [None]
  - MECHANICAL ILEUS [None]
